FAERS Safety Report 4677803-1 (Version None)
Quarter: 2005Q2

REPORT INFORMATION
  Report Type: 
  Country: None (occurrence: None)
  Receive Date: 20050531
  Receipt Date: 20050516
  Transmission Date: 20051028
  Serious: Yes (Death)
  Sender: FDA-Public Use
  Company Number: US-JNJFOC-20050504228

PATIENT
  Age: 78 Year
  Sex: Female
  Weight: 56.5 kg

DRUGS (4)
  1. NATRECOR [Suspect]
     Route: 042
  2. NATRECOR [Suspect]
     Route: 042
  3. VANCOMYCIN [Concomitant]
  4. FUROSEMIDE [Concomitant]

REACTIONS (4)
  - DRUG ADMINISTRATION ERROR [None]
  - INJECTION SITE REACTION [None]
  - PHLEBITIS [None]
  - SEPSIS [None]
